FAERS Safety Report 5549459-7 (Version None)
Quarter: 2007Q4

REPORT INFORMATION
  Report Type: 
  Country: None (occurrence: None)
  Receive Date: 20071212
  Receipt Date: 20070515
  Transmission Date: 20080405
  Serious: No
  Sender: FDA-Public Use
  Company Number: US-AMGEN-KDL218275

PATIENT
  Sex: Female

DRUGS (13)
  1. ENBREL [Suspect]
     Indication: PSORIATIC ARTHROPATHY
     Route: 058
     Dates: start: 20030201
  2. METHOTREXATE [Concomitant]
     Route: 048
     Dates: start: 20000801
  3. DARVOCET [Concomitant]
     Dates: start: 19940101
  4. NEXIUM [Concomitant]
     Dates: start: 20051102
  5. ELMIRON [Concomitant]
     Dates: start: 19991101
  6. FOLIC ACID [Concomitant]
  7. TIAZAC [Concomitant]
     Dates: start: 20010801
  8. DIOVAN HCT [Concomitant]
     Dates: start: 20010801
  9. GLUCOSAMINE [Concomitant]
  10. LIPITOR [Concomitant]
     Dates: start: 20030301
  11. FLEXERIL [Concomitant]
     Dates: start: 20030701
  12. ATACAND [Concomitant]
  13. DILTIAZEM [Concomitant]
     Dates: start: 20040901

REACTIONS (2)
  - BACK PAIN [None]
  - NASOPHARYNGITIS [None]
